FAERS Safety Report 4840044-9 (Version None)
Quarter: 2005Q4

REPORT INFORMATION
  Report Type: 
  Country: None (occurrence: None)
  Receive Date: 20051125
  Receipt Date: 20051109
  Transmission Date: 20060501
  Serious: Yes (Life-Threatening)
  Sender: FDA-Public Use
  Company Number: CN-2005-020822

PATIENT
  Age: 56 Year

DRUGS (1)
  1. ULTRAVIST 370 [Suspect]
     Indication: COMPUTERISED TOMOGRAM CORONARY ARTERY
     Dosage: 90 ML, 1 DOSE, INTRAVENOUS
     Route: 042
     Dates: start: 20050929, end: 20050929

REACTIONS (5)
  - CARDIOPULMONARY FAILURE [None]
  - COMA [None]
  - CONVULSIONS LOCAL [None]
  - NAUSEA [None]
  - PROCEDURAL COMPLICATION [None]
